FAERS Safety Report 16027876 (Version 1)
Quarter: 2019Q1

REPORT INFORMATION
  Report Type: Spontaneous
  Country: US (occurrence: US)
  Receive Date: 20190304
  Receipt Date: 20190304
  Transmission Date: 20190418
  Serious: No
  Sender: FDA-Public Use
  Company Number: US-IMPAX LABORATORIES, LLC-2018-IPXL-00937

PATIENT
  Age: 52 Year
  Sex: Female
  Weight: 58 kg

DRUGS (2)
  1. RYTARY [Suspect]
     Active Substance: CARBIDOPA\LEVODOPA
     Indication: PARKINSON^S DISEASE
     Dosage: 23.75/95 MG, 1 CAPSULE, THREE TIMES DAILY
     Route: 048
     Dates: start: 201712, end: 20180320
  2. RYTARY [Suspect]
     Active Substance: CARBIDOPA\LEVODOPA
     Dosage: 23.75/95 MG, THREE CAPSULES THREE TIMES DAILY
     Route: 048
     Dates: start: 201803

REACTIONS (5)
  - Muscle spasms [Recovering/Resolving]
  - Malaise [Unknown]
  - Fatigue [Recovering/Resolving]
  - Headache [Not Recovered/Not Resolved]
  - Dizziness [Not Recovered/Not Resolved]

NARRATIVE: CASE EVENT DATE: 201712
